FAERS Safety Report 10187700 (Version 5)
Quarter: 2014Q3

REPORT INFORMATION
  Report Type: Spontaneous
  Country: US (occurrence: None)
  Receive Date: 20140520
  Receipt Date: 20140710
  Transmission Date: 20150326
  Serious: Yes (Hospitalization)
  Sender: FDA-Public Use
  Company Number: AEGR000458

PATIENT
  Age: 67 Year
  Sex: Male
  Weight: 81.6 kg

DRUGS (10)
  1. SUCRALFATE (SUCRALFATE) [Concomitant]
  2. TRAZODONE HCL (TRAZODONE HYDROCHLORIDE) [Concomitant]
  3. ISOSORBIDE MONONITRATE (ISOSORBIDE MONOITRATE) [Concomitant]
  4. METOPROLOL (METOPROLOL TARTRATE) [Concomitant]
     Active Substance: METOPROLOL TARTRATE
  5. LEVITRA (VARDENAFIL HYDROCHLORIDE) [Concomitant]
  6. ASPIRIN. [Concomitant]
     Active Substance: ASPIRIN
  7. WELCHOL [Suspect]
     Active Substance: COLESEVELAM HYDROCHLORIDE
     Indication: PRODUCT USED FOR UNKNOWN INDICATION
  8. ZETIA [Concomitant]
     Active Substance: EZETIMIBE
  9. LORAZEPAM (LORAZEPAM) [Concomitant]
     Active Substance: LORAZEPAM
  10. JUXTAPID [Suspect]
     Active Substance: LOMITAPIDE MESYLATE
     Indication: TYPE IIA HYPERLIPIDAEMIA
     Route: 048
     Dates: start: 20131018, end: 2014

REACTIONS (5)
  - Stent placement [None]
  - Drug ineffective [None]
  - Blood cholesterol increased [None]
  - Inhibitory drug interaction [None]
  - Inappropriate schedule of drug administration [None]

NARRATIVE: CASE EVENT DATE: 2014
